FAERS Safety Report 10796032 (Version 3)
Quarter: 2015Q4

REPORT INFORMATION
  Report Type: Report from Study
  Country: US (occurrence: US)
  Receive Date: 20150216
  Receipt Date: 20151127
  Transmission Date: 20160304
  Serious: Yes (Hospitalization, Other)
  Sender: FDA-Public Use
  Company Number: US-ROCHE-1535320

PATIENT

DRUGS (3)
  1. BEVACIZUMAB [Suspect]
     Active Substance: BEVACIZUMAB
     Indication: GLIOBLASTOMA
     Route: 065
  2. IRINOTECAN [Suspect]
     Active Substance: IRINOTECAN
     Indication: GLIOBLASTOMA
     Route: 065
  3. TEMOZOLOMIDE. [Suspect]
     Active Substance: TEMOZOLOMIDE
     Indication: GLIOBLASTOMA
     Route: 065

REACTIONS (15)
  - Pancreatitis [Unknown]
  - Wound infection [Unknown]
  - Staphylococcal infection [Unknown]
  - Diverticulitis [Unknown]
  - Deep vein thrombosis [Unknown]
  - Wound dehiscence [Unknown]
  - Pseudomonas infection [Unknown]
  - Hypertension [Unknown]
  - Pulmonary embolism [Unknown]
  - Soft tissue infection [Unknown]
  - Venous thrombosis [Unknown]
  - Cerebrovascular accident [Unknown]
  - Gastrointestinal perforation [Unknown]
  - Bone marrow failure [Unknown]
  - Impaired healing [Unknown]
